FAERS Safety Report 7857232-X (Version None)
Quarter: 2011Q4

REPORT INFORMATION
  Report Type: 
  Country: None (occurrence: None)
  Receive Date: 20111027
  Receipt Date: 20111012
  Transmission Date: 20120403
  Serious: Yes (Death, Hospitalization, Other)
  Sender: FDA-Public Use
  Company Number: DE-BIOGENIDEC-2011BI038805

PATIENT
  Age: 46 Year
  Sex: Female

DRUGS (2)
  1. TYSABRI [Suspect]
     Indication: RELAPSING-REMITTING MULTIPLE SCLEROSIS
     Route: 042
     Dates: start: 20081024, end: 20090220
  2. NOVATRONE [Concomitant]
     Dates: start: 20090701, end: 20100901

REACTIONS (11)
  - DEATH [None]
  - PNEUMONIA [None]
  - RENAL FAILURE ACUTE [None]
  - STAPHYLOCOCCUS TEST POSITIVE [None]
  - ENTEROCOCCUS TEST POSITIVE [None]
  - URINARY TRACT INFECTION [None]
  - THERMAL BURN [None]
  - ACCIDENT AT HOME [None]
  - MALAISE [None]
  - SEPTIC SHOCK [None]
  - SEPSIS [None]
